FAERS Safety Report 19404270 (Version 1)
Quarter: 2021Q2

REPORT INFORMATION
  Report Type: Spontaneous
  Country: US (occurrence: US)
  Receive Date: 20210611
  Receipt Date: 20210611
  Transmission Date: 20210717
  Serious: Yes (Hospitalization)
  Sender: FDA-Public Use
  Company Number: None

PATIENT
  Age: 89 Year
  Sex: Male
  Weight: 91.6 kg

DRUGS (2)
  1. LEUPROLIDE ACETATE. [Suspect]
     Active Substance: LEUPROLIDE ACETATE
     Dates: end: 20160626
  2. CASODEX [Suspect]
     Active Substance: BICALUTAMIDE
     Dates: end: 20140714

REACTIONS (3)
  - Haematuria [None]
  - Prostate cancer recurrent [None]
  - Cystitis radiation [None]

NARRATIVE: CASE EVENT DATE: 20210521
